FAERS Safety Report 21259193 (Version 1)
Quarter: 2022Q3

REPORT INFORMATION
  Report Type: Report from Study
  Country: SG (occurrence: SG)
  Receive Date: 20220826
  Receipt Date: 20220826
  Transmission Date: 20221027
  Serious: Yes (Death, Hospitalization, Other)
  Sender: FDA-Public Use
  Company Number: SG-NOVARTISPH-NVSC2021SG147633

PATIENT
  Age: 69 Year
  Sex: Female
  Weight: 50 kg

DRUGS (3)
  1. KYMRIAH [Suspect]
     Active Substance: TISAGENLECLEUCEL
     Indication: Diffuse large B-cell lymphoma recurrent
     Dosage: 6X10E8, ONCE/SINGLE
     Route: 042
     Dates: start: 20210322
  2. ACYCLOVIR [Concomitant]
     Active Substance: ACYCLOVIR
     Indication: Antibiotic prophylaxis
     Dosage: 400 MG, BID
     Route: 048
     Dates: start: 20210118, end: 20210730
  3. COTRIMOXAZOLE [Concomitant]
     Active Substance: SULFAMETHOXAZOLE\TRIMETHOPRIM
     Indication: Antibiotic prophylaxis
     Dosage: 960 MG, Q3W
     Route: 048
     Dates: start: 20210217, end: 20210730

REACTIONS (9)
  - Death [Fatal]
  - Diffuse large B-cell lymphoma refractory [Recovering/Resolving]
  - Malignant neoplasm progression [Recovering/Resolving]
  - Metastases to bone [Recovering/Resolving]
  - Metastases to retroperitoneum [Recovering/Resolving]
  - Cytokine release syndrome [Unknown]
  - Metastasis [Recovering/Resolving]
  - Blood lactate dehydrogenase increased [Unknown]
  - Peripheral swelling [Unknown]

NARRATIVE: CASE EVENT DATE: 20210325
